FAERS Safety Report 6311634-1 (Version None)
Quarter: 2009Q3

REPORT INFORMATION
  Report Type: 
  Country: None (occurrence: None)
  Receive Date: 20090817
  Receipt Date: 20090811
  Transmission Date: 20100115
  Serious: Yes (Hospitalization)
  Sender: FDA-Public Use
  Company Number: B0585833A

PATIENT
  Sex: Female
  Weight: 85 kg

DRUGS (6)
  1. LAPATINIB [Suspect]
     Indication: BREAST CANCER
     Dosage: 1250MG PER DAY
     Route: 048
     Dates: start: 20090616
  2. EPIRUBICIN [Suspect]
     Indication: BREAST CANCER
     Dosage: 168MG CYCLIC
     Route: 042
     Dates: start: 20090616
  3. CYCLOPHOSPHAMIDE [Suspect]
     Indication: BREAST CANCER
     Dosage: 1122MG CYCLIC
     Route: 042
     Dates: start: 20090616
  4. METFORMIN [Concomitant]
     Dosage: 1000MG PER DAY
     Dates: start: 20040101
  5. LOPERAMIDE [Concomitant]
     Dosage: 2MG PER DAY
     Dates: start: 20090622
  6. DIAVAN [Concomitant]
     Dosage: 160MG PER DAY
     Dates: start: 20090610

REACTIONS (1)
  - FEBRILE NEUTROPENIA [None]
